FAERS Safety Report 23822317 (Version 1)
Quarter: 2024Q2

REPORT INFORMATION
  Report Type: Spontaneous
  Country: US (occurrence: None)
  Receive Date: 20240504
  Receipt Date: 20240504
  Transmission Date: 20240715
  Serious: No
  Sender: FDA-Public Use
  Company Number: None

PATIENT
  Sex: Female
  Weight: 65 kg

DRUGS (1)
  1. PONATINIB HYDROCHLORIDE [Suspect]
     Active Substance: PONATINIB HYDROCHLORIDE
     Dates: end: 20240430

REACTIONS (6)
  - Palpitations [None]
  - Chest discomfort [None]
  - Dyspnoea [None]
  - Atrial fibrillation [None]
  - Weight increased [None]
  - Nonspecific reaction [None]

NARRATIVE: CASE EVENT DATE: 20240429
